FAERS Safety Report 7278104-8 (Version None)
Quarter: 2011Q1

REPORT INFORMATION
  Report Type: 
  Country: None (occurrence: None)
  Receive Date: 20110131
  Receipt Date: 20110121
  Transmission Date: 20110831
  Serious: Yes (Death, Life-Threatening, Hospitalization)
  Sender: FDA-Public Use
  Company Number: CV20110016

PATIENT
  Age: 3 Month
  Sex: Male

DRUGS (2)
  1. INTRALIPID 20% [Suspect]
     Indication: PARENTERAL NUTRITION
     Dosage: INTRAVENOUS (NOT OTHERWISE SPECIFIED)
     Route: 042
     Dates: start: 20100913, end: 20101206
  2. PARENTERAL NUTRITION (TPN) [Concomitant]

REACTIONS (7)
  - INTERNATIONAL NORMALISED RATIO INCREASED [None]
  - CONDITION AGGRAVATED [None]
  - SEPSIS [None]
  - LIVER DISORDER [None]
  - CARDIAC ARREST [None]
  - HEPATIC FAILURE [None]
  - UPPER GASTROINTESTINAL HAEMORRHAGE [None]
